FAERS Safety Report 4668660-8 (Version None)
Quarter: 2005Q2

REPORT INFORMATION
  Report Type: 
  Country: None (occurrence: None)
  Receive Date: 20050523
  Receipt Date: 20041005
  Transmission Date: 20051028
  Serious: Yes (Hospitalization)
  Sender: FDA-Public Use
  Company Number: US-GLAXOSMITHKLINE-A0528556A

PATIENT
  Age: 35 Year
  Sex: Male

DRUGS (3)
  1. FLOLAN [Suspect]
     Indication: PULMONARY HYPERTENSION
     Dosage: 27NG CONTINUOUS
     Route: 042
     Dates: start: 20041001
  2. HEPARIN [Concomitant]
  3. THROMBOLYTIC AGENT [Concomitant]

REACTIONS (1)
  - PULMONARY OEDEMA [None]
